FAERS Safety Report 7271697-6 (Version None)
Quarter: 2011Q1

REPORT INFORMATION
  Report Type: 
  Country: None (occurrence: None)
  Receive Date: 20110203
  Receipt Date: 20110124
  Transmission Date: 20110831
  Serious: Yes (Death)
  Sender: FDA-Public Use
  Company Number: US-CELGENEUS-163-21880-10123053

PATIENT
  Sex: Female

DRUGS (6)
  1. REVLIMID [Suspect]
     Indication: MULTIPLE MYELOMA
     Route: 048
     Dates: start: 20100930
  2. ASPIRIN [Concomitant]
     Indication: ATRIAL FIBRILLATION
     Route: 065
  3. TOPROL-XL [Concomitant]
     Indication: ATRIAL FIBRILLATION
     Route: 065
  4. DIGOXIN [Concomitant]
     Indication: ATRIAL FIBRILLATION
     Route: 065
  5. DIOVAN [Concomitant]
     Indication: HYPERTENSION
     Route: 065
  6. ZOCOR [Concomitant]
     Route: 065

REACTIONS (1)
  - SEPSIS [None]
